FAERS Safety Report 19266498 (Version 3)
Quarter: 2024Q3

REPORT INFORMATION
  Report Type: Spontaneous
  Country: BE (occurrence: BE)
  Receive Date: 20210518
  Receipt Date: 20240731
  Transmission Date: 20241016
  Serious: Yes (Hospitalization, Other)
  Sender: NOVO NORDISK
  Company Number: BE-NOVOPROD-810668

PATIENT
  Age: 68 Year
  Sex: Female
  Weight: 74 kg

DRUGS (12)
  1. ASPIRIN [Concomitant]
     Active Substance: ASPIRIN
     Dosage: 80.0,MG,
     Dates: start: 20130823
  2. ISOSORBIDE MONONITRATE [Concomitant]
     Active Substance: ISOSORBIDE MONONITRATE
     Dosage: 5.0,MG,
     Dates: start: 20140801
  3. BISOPROLOL [Concomitant]
     Active Substance: BISOPROLOL\BISOPROLOL FUMARATE
     Dosage: 10.0,MG,
     Dates: start: 20200221
  4. ROSUVASTATIN [Concomitant]
     Active Substance: ROSUVASTATIN\ROSUVASTATIN CALCIUM
     Dosage: 40.0,MG,
     Dates: start: 20200221
  5. EZETIMIBE [Concomitant]
     Active Substance: EZETIMIBE
     Dosage: 10.0,MG,
     Dates: start: 20200221
  6. LISINOPRIL [Concomitant]
     Active Substance: LISINOPRIL
     Dosage: 20.0,MG,
     Dates: start: 19900607, end: 20220127
  7. METFORMIN [Concomitant]
     Active Substance: METFORMIN HYDROCHLORIDE
     Dosage: 2550.0,MG,
     Dates: start: 20000727
  8. CLOPIDOGREL [Concomitant]
     Active Substance: CLOPIDOGREL BISULFATE
     Dosage: 75.0,MG,
     Dates: start: 20201201
  9. INSULIN GLARGINE [Concomitant]
     Active Substance: INSULIN GLARGINE
     Dosage: 32.0,U,
     Dates: start: 20210412
  10. NOVORAPID [Suspect]
     Active Substance: INSULIN ASPART
     Dosage: 120 IU, SINGLE
     Dates: start: 20210505, end: 20210505
  11. NOVORAPID [Suspect]
     Active Substance: INSULIN ASPART
     Dosage: 30 U
     Dates: end: 20211124
  12. NOVORAPID [Suspect]
     Active Substance: INSULIN ASPART
     Indication: Type 2 diabetes mellitus
     Dosage: 30.0,U,
     Dates: start: 20210412

REACTIONS (3)
  - Suicidal ideation [Recovered/Resolved]
  - Hypoglycaemia [Unknown]
  - Intentional overdose [Recovered/Resolved]

NARRATIVE: CASE EVENT DATE: 20210505
